FAERS Safety Report 6189615-0 (Version None)
Quarter: 2009Q2

REPORT INFORMATION
  Report Type: 
  Country: None (occurrence: None)
  Receive Date: 20090512
  Receipt Date: 20090512
  Transmission Date: 20091009
  Serious: Yes (Other)
  Sender: FDA-Public Use
  Company Number: None

PATIENT
  Age: 56 Year
  Sex: Female
  Weight: 68.0396 kg

DRUGS (1)
  1. METHYLPREDNISOLONE [Suspect]
     Indication: TYMPANIC MEMBRANE PERFORATION
     Dosage: TAKE AS DIRECTED
     Dates: start: 20090507, end: 20090508

REACTIONS (13)
  - CHEST PAIN [None]
  - ERYTHEMA [None]
  - EYE PRURITUS [None]
  - EYE SWELLING [None]
  - FEELING HOT [None]
  - FLUSHING [None]
  - INSOMNIA [None]
  - OCULAR HYPERAEMIA [None]
  - PALPITATIONS [None]
  - PARAESTHESIA ORAL [None]
  - PRURITUS [None]
  - RASH [None]
  - THROAT IRRITATION [None]
